FAERS Safety Report 6382049-5 (Version None)
Quarter: 2009Q3

REPORT INFORMATION
  Report Type: 
  Country: None (occurrence: None)
  Receive Date: 20090930
  Receipt Date: 20090917
  Transmission Date: 20100115
  Serious: Yes (Other)
  Sender: FDA-Public Use
  Company Number: PHHY2009GB10598

PATIENT
  Sex: Male

DRUGS (6)
  1. TASIGNA [Suspect]
     Indication: CHRONIC MYELOID LEUKAEMIA
     Dosage: 200 MG - 600 MG DAILY
     Dates: start: 20080409
  2. TASIGNA [Suspect]
     Dosage: 200 MG, UNK
     Dates: start: 20090501
  3. TASIGNA [Suspect]
     Dosage: 400 MG DAILY
     Dates: start: 20090701
  4. FUROSEMIDE [Concomitant]
     Dosage: 40 MG, QD
  5. ATENOLOL [Concomitant]
     Dosage: 25 MG, QD
  6. GABAPENTIN [Concomitant]
     Dosage: 600 MG, QD

REACTIONS (6)
  - DRUG DOSE OMISSION [None]
  - EATING DISORDER [None]
  - NEUTROPENIA [None]
  - PLATELET COUNT DECREASED [None]
  - WEIGHT INCREASED [None]
  - WHITE BLOOD CELL COUNT DECREASED [None]
